FAERS Safety Report 10182653 (Version 1)
Quarter: 2014Q2

REPORT INFORMATION
  Report Type: Spontaneous
  Country: JP (occurrence: None)
  Receive Date: 20140516
  Receipt Date: 20140516
  Transmission Date: 20141212
  Serious: Yes (Other)
  Sender: FDA-Public Use
  Company Number: 2014JP00454

PATIENT
  Sex: 0

DRUGS (3)
  1. CARBOPLATIN [Suspect]
     Indication: NON-SMALL CELL LUNG CANCER
     Dosage: AUC OF 2.5 MG/ML/MIN WAS DILUTED IN 500 ML OF NORMAL SALINE AND ADMINISTERED OVER 60 MIN
  2. VINORELBINE [Suspect]
     Indication: NON-SMALL CELL LUNG CANCER
     Dosage: DILUTED IN 20 ML OF NORMAL SALINE, ADMINSTERED AS AN IV INFUSION OVER 6 M ON D1 + D8
     Route: 042
  3. THORACIC RADIOTHERAPY(OTHER CHEMOTHERAPEUTICS) [Concomitant]

REACTIONS (1)
  - Radiation oesophagitis [None]
